FAERS Safety Report 9848951 (Version 3)
Quarter: 2014Q2

REPORT INFORMATION
  Report Type: Spontaneous
  Country: DE (occurrence: DE)
  Receive Date: 20140128
  Receipt Date: 20140507
  Transmission Date: 20141212
  Serious: Yes (Hospitalization, Other)
  Sender: FDA-Public Use
  Company Number: DE-ASTELLAS-2014EU000398

PATIENT
  Age: 73 Year
  Sex: Male

DRUGS (1)
  1. XTANDI [Suspect]
     Indication: PROSTATE CANCER METASTATIC
     Dosage: 160 MG, 4 CAPSULES ONCE DAILY
     Route: 048
     Dates: end: 20140113

REACTIONS (3)
  - Atrial fibrillation [Recovered/Resolved]
  - Prostatic specific antigen increased [Unknown]
  - Bradycardia [Unknown]
